FAERS Safety Report 10157037 (Version 1)
Quarter: 2014Q2

REPORT INFORMATION
  Report Type: Spontaneous
  Country: US (occurrence: None)
  Receive Date: 20140506
  Receipt Date: 20140506
  Transmission Date: 20141212
  Serious: No
  Sender: FDA-Public Use
  Company Number: None

PATIENT
  Age: 73 Year
  Sex: Male

DRUGS (10)
  1. AVASTIN [Suspect]
     Indication: MACULAR DEGENERATION
     Dosage: 0.05 ML  SINGLE INTRAVITREAL INJECTION  INTRAVITREAL INJECTION
     Dates: start: 20140404, end: 20140404
  2. INSULIN [Concomitant]
  3. JANUVIA [Concomitant]
  4. GLIPIZIDE [Concomitant]
  5. DIOVAN [Concomitant]
  6. VERAPAMIL [Concomitant]
  7. CELEBREX [Concomitant]
  8. ZOLOFT [Concomitant]
  9. CRESTOR [Concomitant]
  10. OCUVITE EYE VITAMINS [Concomitant]

REACTIONS (1)
  - Vitreous floaters [None]
